FAERS Safety Report 6210708-3 (Version None)
Quarter: 2009Q2

REPORT INFORMATION
  Report Type: 
  Country: None (occurrence: None)
  Receive Date: 20090528
  Receipt Date: 20090528
  Transmission Date: 20091009
  Serious: Yes (Hospitalization)
  Sender: FDA-Public Use
  Company Number: None

PATIENT
  Age: 14 Year
  Sex: Male
  Weight: 49.8957 kg

DRUGS (2)
  1. CYCLOGYL [Suspect]
     Indication: MYDRIASIS
     Dosage: UNKNOWN 1X
     Dates: start: 20090404, end: 20090404
  2. MYDRIACYL [Suspect]

REACTIONS (1)
  - CONVULSION [None]
